FAERS Safety Report 7460414-2 (Version None)
Quarter: 2011Q2

REPORT INFORMATION
  Report Type: 
  Country: None (occurrence: None)
  Receive Date: 20110505
  Receipt Date: 20110415
  Transmission Date: 20111010
  Serious: Yes (Life-Threatening, Hospitalization)
  Sender: FDA-Public Use
  Company Number: B0709550A

PATIENT
  Sex: Female
  Weight: 85 kg

DRUGS (9)
  1. NEXIUM [Concomitant]
     Indication: PROPHYLAXIS
     Dosage: 40MG PER DAY
     Route: 048
  2. ATROVENT [Concomitant]
     Indication: LUNG DISORDER
     Route: 055
  3. SALOSPIR [Concomitant]
     Indication: PROPHYLAXIS
     Route: 048
  4. DEXAMETHASONE [Concomitant]
     Dosage: 4MG PER DAY
     Route: 048
  5. LAPATINIB [Suspect]
     Dosage: 1500MG PER DAY
     Route: 048
     Dates: start: 20110221, end: 20110312
  6. LOPRESSOR [Concomitant]
     Indication: HYPERTENSION
     Route: 048
  7. SIMVASTATIN [Concomitant]
     Route: 048
  8. PULMICORT [Concomitant]
     Indication: LUNG DISORDER
     Route: 055
  9. UNKNOWN DRUG [Concomitant]
     Route: 048

REACTIONS (1)
  - PULMONARY EMBOLISM [None]
